FAERS Safety Report 23857872 (Version 1)
Quarter: 2024Q2

REPORT INFORMATION
  Report Type: Spontaneous
  Country: CN (occurrence: CN)
  Receive Date: 20240515
  Receipt Date: 20240515
  Transmission Date: 20240716
  Serious: Yes (Hospitalization)
  Sender: FDA-Public Use
  Company Number: CN-MYLANLABS-2024M1043457

PATIENT
  Age: 72 Year
  Sex: Male

DRUGS (11)
  1. PREGABALIN [Suspect]
     Active Substance: PREGABALIN
     Indication: Post herpetic neuralgia
     Dosage: 1 DOSAGE FORM, BID
     Route: 065
  2. PREGABALIN [Suspect]
     Active Substance: PREGABALIN
     Indication: Herpes zoster
  3. ACYCLOVIR [Concomitant]
     Active Substance: ACYCLOVIR
     Indication: Herpes zoster
     Dosage: 1 DOSAGE FORM, Q8H
     Route: 065
  4. CODEINE PHOSPHATE;IBUPROFEN [Concomitant]
     Indication: Post herpetic neuralgia
     Dosage: 1 DOSAGE FORM, Q6H
     Route: 065
  5. OXYCODONE AND ACETAMINOPHEN [Concomitant]
     Active Substance: ACETAMINOPHEN\OXYCODONE HYDROCHLORIDE
     Indication: Post herpetic neuralgia
     Dosage: 1 DOSAGE FORM, Q6H
     Route: 065
  6. INSULIN GLARGINE [Concomitant]
     Active Substance: INSULIN GLARGINE
     Indication: Diabetes mellitus
     Dosage: UNK
     Route: 065
  7. INSULIN GLULISINE [Concomitant]
     Active Substance: INSULIN GLULISINE
     Indication: Diabetes mellitus
     Dosage: UNK
     Route: 065
  8. MORPHINE HYDROCHLORIDE [Concomitant]
     Active Substance: MORPHINE HYDROCHLORIDE
     Indication: Post herpetic neuralgia
     Dosage: 5 MILLIGRAM
     Route: 065
  9. DICLOFENAC SODIUM [Concomitant]
     Active Substance: DICLOFENAC\DICLOFENAC SODIUM
     Indication: Post herpetic neuralgia
     Dosage: 75 MILLIGRAM, QD
     Route: 065
  10. ROPIVACAINE [Concomitant]
     Active Substance: ROPIVACAINE
     Indication: Post herpetic neuralgia
     Dosage: 2.5 MILLILITER
     Route: 065
  11. DIPROSPAN [Concomitant]
     Active Substance: BETAMETHASONE DIPROPIONATE\BETAMETHASONE SODIUM PHOSPHATE
     Indication: Post herpetic neuralgia
     Dosage: 7 MILLIGRAM
     Route: 065

REACTIONS (1)
  - Type IV hypersensitivity reaction [Recovered/Resolved]
